FAERS Safety Report 6467064-5 (Version None)
Quarter: 2009Q4

REPORT INFORMATION
  Report Type: 
  Country: None (occurrence: None)
  Receive Date: 20091202
  Receipt Date: 20091119
  Transmission Date: 20100525
  Serious: Yes (Hospitalization, Other)
  Sender: FDA-Public Use
  Company Number: US-PFIZER INC-2009300364

PATIENT
  Age: 11 Year
  Sex: Female

DRUGS (5)
  1. ZOLOFT [Suspect]
     Dosage: 25 MG, UNK
  2. FLUOXETINE [Suspect]
     Indication: ANXIETY
     Dosage: 20 MG, UNK
     Route: 048
  3. FLUOXETINE [Suspect]
     Indication: DEPRESSION
     Dosage: 20 MG, UNK
     Route: 048
  4. FLUOXETINE [Suspect]
     Indication: SUICIDAL IDEATION
     Dosage: (10MG AND 20MG) (30MG), UNKNOWN
     Route: 048
  5. FLUOXETINE [Suspect]
     Dosage: 10 MG, UNK
     Route: 048

REACTIONS (4)
  - ANXIETY [None]
  - DEPRESSION [None]
  - MENTAL DISORDER [None]
  - SUICIDAL IDEATION [None]
